FAERS Safety Report 6152489-8 (Version None)
Quarter: 2009Q2

REPORT INFORMATION
  Report Type: 
  Country: None (occurrence: None)
  Receive Date: 20090413
  Receipt Date: 20090401
  Transmission Date: 20091009
  Serious: Yes (Hospitalization, Other)
  Sender: FDA-Public Use
  Company Number: PHHY2009ZA12269

PATIENT
  Sex: Male

DRUGS (3)
  1. CO-TAREG [Suspect]
     Indication: HYPERTENSION
     Dosage: UNK
     Dates: start: 20081109
  2. CO-TAREG [Suspect]
     Dosage: 80 MG, QID
     Dates: start: 20090201
  3. AMLODIPINE [Concomitant]
     Dosage: 5 MG

REACTIONS (3)
  - CARDIOVASCULAR EVENT PROPHYLAXIS [None]
  - HEART RATE IRREGULAR [None]
  - HYPERTENSION [None]
